FAERS Safety Report 5744898-3 (Version None)
Quarter: 2008Q2

REPORT INFORMATION
  Report Type: 
  Country: None (occurrence: None)
  Receive Date: 20080516
  Receipt Date: 20080502
  Transmission Date: 20081010
  Serious: Yes (Other)
  Sender: FDA-Public Use
  Company Number: 2008S1007680

PATIENT
  Age: 38 Year
  Sex: Female

DRUGS (5)
  1. IBUPROFEN [Suspect]
     Indication: INTENTIONAL OVERDOSE
  2. CLARITHROMYCIN [Suspect]
     Indication: INTENTIONAL OVERDOSE
  3. TRIMIPRAMINE MALEATE [Suspect]
     Indication: INTENTIONAL OVERDOSE
  4. DICLOFENAC SODIUM [Suspect]
     Indication: INTENTIONAL OVERDOSE
  5. ALCOHOL (ETHANOL) [Concomitant]
     Indication: INTENTIONAL OVERDOSE

REACTIONS (4)
  - COLONIC ATONY [None]
  - COMA [None]
  - HYPOTENSION [None]
  - INTENTIONAL OVERDOSE [None]
